FAERS Safety Report 6341844-9 (Version None)
Quarter: 2009Q3

REPORT INFORMATION
  Report Type: 
  Country: None (occurrence: None)
  Receive Date: 20090904
  Receipt Date: 20090826
  Transmission Date: 20100115
  Serious: Yes (Other)
  Sender: FDA-Public Use
  Company Number: US-ABBOTT-09P-163-0593631-00

PATIENT
  Sex: Female

DRUGS (6)
  1. LUPRON DEPOT [Suspect]
     Indication: ENDOMETRIOSIS
     Dosage: UNKNOWN
     Dates: start: 20060101, end: 20060101
  2. LUPRON DEPOT [Suspect]
     Indication: CYST
  3. HORMONE THERAPY [Suspect]
     Indication: ENDOMETRIOSIS
     Dosage: UNKNOWN
     Route: 065
     Dates: start: 20060101
  4. HORMONE THERAPY [Suspect]
     Indication: CYST
  5. UNKNOWN MEDICATION [Concomitant]
     Indication: BIPOLAR DISORDER
     Dosage: UNKNOWN
     Route: 065
  6. UNKNOWN MEDICATION [Concomitant]
     Indication: DEPRESSION
     Dosage: UNKNOWN

REACTIONS (6)
  - ABDOMINAL WALL CYST [None]
  - DEPRESSION [None]
  - ENDOMETRIOSIS [None]
  - OVARIAN CYST [None]
  - SUICIDAL IDEATION [None]
  - VOMITING [None]
